FAERS Safety Report 9836760 (Version 1)
Quarter: 2014Q1

REPORT INFORMATION
  Report Type: Spontaneous
  Country: US (occurrence: None)
  Receive Date: 20140116
  Receipt Date: 20140116
  Transmission Date: 20141002
  Serious: Yes (Death)
  Sender: FDA-Public Use
  Company Number: None

PATIENT
  Age: 92 Year
  Sex: Male

DRUGS (1)
  1. SENSIPAR [Suspect]
     Route: 048
     Dates: start: 20131230, end: 20140111

REACTIONS (1)
  - Cardiac failure [None]
